FAERS Safety Report 4449486-7 (Version None)
Quarter: 2004Q3

REPORT INFORMATION
  Report Type: 
  Country: None (occurrence: None)
  Receive Date: 20040910
  Receipt Date: 20040910
  Transmission Date: 20050211
  Serious: Yes (Disabling)
  Sender: FDA-Public Use
  Company Number: None

PATIENT
  Age: 24 Year
  Sex: Female
  Weight: 72.5755 kg

DRUGS (1)
  1. ZOLOFT [Suspect]
     Indication: PANIC DISORDER
     Dosage: SEE IMAGE
     Dates: start: 20010831, end: 20010912

REACTIONS (24)
  - ANXIETY [None]
  - ASTHENIA [None]
  - BEDRIDDEN [None]
  - COORDINATION ABNORMAL [None]
  - DEPERSONALISATION [None]
  - DEREALISATION [None]
  - DRY MOUTH [None]
  - EATING DISORDER [None]
  - EMOTIONAL DISTRESS [None]
  - EPISTAXIS [None]
  - HALLUCINATION, AUDITORY [None]
  - INSOMNIA [None]
  - LOSS OF CONSCIOUSNESS [None]
  - MOVEMENT DISORDER [None]
  - PANIC ATTACK [None]
  - PARAESTHESIA [None]
  - PHOTOSENSITIVITY REACTION [None]
  - POLLAKIURIA [None]
  - SENSORY LOSS [None]
  - SPEECH DISORDER [None]
  - TACHYCARDIA [None]
  - TREMOR [None]
  - VISUAL DISTURBANCE [None]
  - VOMITING [None]
